FAERS Safety Report 8876245 (Version 2)
Quarter: 2013Q1

REPORT INFORMATION
  Report Type: Spontaneous
  Country: US (occurrence: US)
  Receive Date: 20121023
  Receipt Date: 20130108
  Transmission Date: 20140127
  Serious: No
  Sender: FDA-Public Use
  Company Number: US-ASTRAZENECA-2012SE78407

PATIENT
  Age: 69 Year
  Sex: Female

DRUGS (4)
  1. NEXIUM [Suspect]
     Route: 048
  2. PRILOSEC [Suspect]
     Route: 048
  3. CLARITIN [Concomitant]
  4. NASONEX [Concomitant]

REACTIONS (3)
  - Blood cholesterol increased [Unknown]
  - Headache [Unknown]
  - Drug ineffective [Unknown]
